FAERS Safety Report 14349954 (Version 2)
Quarter: 2018Q1

REPORT INFORMATION
  Report Type: Spontaneous
  Country: None (occurrence: US)
  Receive Date: 20180104
  Receipt Date: 20180104
  Transmission Date: 20180509
  Serious: No
  Sender: FDA-Public Use
  Company Number: US-NEPHRON PHARMACEUTICALS CORPORATION-2038365

PATIENT

DRUGS (1)
  1. S2 [Suspect]
     Active Substance: RACEPINEPHRINE HYDROCHLORIDE
     Route: 042

REACTIONS (1)
  - Medication error [Unknown]
